FAERS Safety Report 7913305-4 (Version None)
Quarter: 2011Q4

REPORT INFORMATION
  Report Type: 
  Country: None (occurrence: None)
  Receive Date: 20111114
  Receipt Date: 20111104
  Transmission Date: 20120403
  Serious: Yes (Hospitalization)
  Sender: FDA-Public Use
  Company Number: US-ASTRAZENECA-2011SE39534

PATIENT
  Age: 74 Year
  Sex: Female

DRUGS (2)
  1. VIMOVO [Suspect]
     Route: 048
  2. SYMBICORT [Suspect]
     Route: 055

REACTIONS (3)
  - PNEUMONIA [None]
  - ARTHRITIS [None]
  - HIATUS HERNIA [None]
